FAERS Safety Report 8840805 (Version 4)
Quarter: 2014Q2

REPORT INFORMATION
  Report Type: Spontaneous
  Country: US (occurrence: US)
  Receive Date: 20121015
  Receipt Date: 20140511
  Transmission Date: 20141212
  Serious: No
  Sender: FDA-Public Use
  Company Number: US-009507513-1210USA004067

PATIENT
  Sex: Male

DRUGS (7)
  1. PROPECIA [Suspect]
     Indication: ANDROGENETIC ALOPECIA
     Dosage: 1 MG, UNK
     Route: 048
     Dates: start: 2003, end: 20050127
  2. CLARITIN [Concomitant]
     Dosage: UNK
     Dates: start: 20010627, end: 20060712
  3. ALLEGRA-D [Concomitant]
     Indication: HYPERSENSITIVITY
     Dosage: UNK
     Dates: start: 20010829, end: 20040720
  4. ALPRAZOLAM [Concomitant]
     Indication: DEPRESSION
     Dosage: UNK
     Dates: start: 20010627, end: 20080519
  5. NAPROXEN [Concomitant]
     Indication: PYREXIA
     Dosage: UNK
     Dates: start: 20010613
  6. NAPROXEN [Concomitant]
     Indication: PAIN
  7. BIAXIN [Concomitant]
     Indication: INFECTION
     Dosage: UNK
     Dates: start: 20010829, end: 20040720

REACTIONS (9)
  - Cognitive disorder [Not Recovered/Not Resolved]
  - Anxiety [Unknown]
  - Bacterial infection [Unknown]
  - Asthma [Unknown]
  - Pain [Unknown]
  - Sexual dysfunction [Not Recovered/Not Resolved]
  - Depression [Unknown]
  - Erectile dysfunction [Unknown]
  - Gynaecomastia [Unknown]
